FAERS Safety Report 6877576-8 (Version None)
Quarter: 2010Q3

REPORT INFORMATION
  Report Type: 
  Country: None (occurrence: None)
  Receive Date: 20100727
  Receipt Date: 20100312
  Transmission Date: 20110219
  Serious: No
  Sender: FDA-Public Use
  Company Number: US-ABBOTT-10P-163-0632595-00

PATIENT
  Age: 36 Year
  Sex: Female
  Weight: 77.18 kg

DRUGS (4)
  1. SYNTHROID [Suspect]
     Indication: HYPOTHYROIDISM
     Route: 048
     Dates: start: 20020101, end: 20091101
  2. SYNTHROID [Suspect]
     Route: 048
     Dates: start: 20091101
  3. BIRTH CONTROL [Concomitant]
     Indication: PRODUCT USED FOR UNKNOWN INDICATION
  4. HYOMAX [Concomitant]
     Indication: ABDOMINAL PAIN UPPER
     Dates: start: 20090801

REACTIONS (10)
  - ABDOMINAL PAIN UPPER [None]
  - ACNE [None]
  - ALOPECIA [None]
  - BILIARY COLIC [None]
  - COELIAC DISEASE [None]
  - ECZEMA [None]
  - FATIGUE [None]
  - HEADACHE [None]
  - MALNUTRITION [None]
  - OSTEOPENIA [None]
